FAERS Safety Report 13163882 (Version 1)
Quarter: 2017Q1

REPORT INFORMATION
  Report Type: Spontaneous
  Country: US (occurrence: US)
  Receive Date: 20170130
  Receipt Date: 20170130
  Transmission Date: 20170428
  Serious: No
  Sender: FDA-Public Use
  Company Number: US-BAXALTA-2017BLT000661

PATIENT
  Age: 62 Year
  Sex: Female
  Weight: 109 kg

DRUGS (2)
  1. GAMMAGARD LIQUID [Suspect]
     Active Substance: HUMAN IMMUNOGLOBULIN G
     Indication: IMMUNODEFICIENCY COMMON VARIABLE
     Dosage: UNK
     Route: 042
  2. GAMMAGARD LIQUID [Suspect]
     Active Substance: HUMAN IMMUNOGLOBULIN G
     Dosage: 30 G, EVERY 4 WK
     Route: 042
     Dates: start: 20161214

REACTIONS (5)
  - Hypertension [Recovered/Resolved]
  - Malaise [Recovered/Resolved]
  - Stress [Not Recovered/Not Resolved]
  - Haemoptysis [Recovered/Resolved]
  - Emotional distress [Not Recovered/Not Resolved]

NARRATIVE: CASE EVENT DATE: 201611
